FAERS Safety Report 9347045 (Version 2)
Quarter: 2013Q3

REPORT INFORMATION
  Report Type: Spontaneous
  Country: US (occurrence: US)
  Receive Date: 20130613
  Receipt Date: 20130702
  Transmission Date: 20140515
  Serious: Yes (Other)
  Sender: FDA-Public Use
  Company Number: US-GLAXOSMITHKLINE-A1026704A

PATIENT
  Age: 64 Year
  Sex: Male
  Weight: 91.8 kg

DRUGS (2)
  1. VOTRIENT [Suspect]
     Indication: RENAL CANCER
     Dosage: 800MG PER DAY
     Route: 048
     Dates: start: 20130322, end: 20130530
  2. NONE [Concomitant]

REACTIONS (2)
  - Metastases to liver [Not Recovered/Not Resolved]
  - Drug ineffective [Not Recovered/Not Resolved]
